FAERS Safety Report 25215403 (Version 3)
Quarter: 2025Q2

REPORT INFORMATION
  Report Type: Spontaneous
  Country: CO (occurrence: CO)
  Receive Date: 20250418
  Receipt Date: 20250519
  Transmission Date: 20250717
  Serious: Yes (Hospitalization, Other)
  Sender: BIOMARIN
  Company Number: CO-SA-2025SA107688

PATIENT

DRUGS (1)
  1. LARONIDASE [Suspect]
     Active Substance: LARONIDASE
     Indication: Mucopolysaccharidosis I
     Dosage: 5.8 MG, QW
     Route: 042
     Dates: start: 20170303

REACTIONS (9)
  - Femur fracture [Recovering/Resolving]
  - Bacteraemia [Recovered/Resolved]
  - Road traffic accident [Recovering/Resolving]
  - Urinary tract infection bacterial [Recovered/Resolved]
  - Limb injury [Unknown]
  - Pain in extremity [Unknown]
  - Oedema peripheral [Recovered/Resolved]
  - Pyrexia [Recovered/Resolved]
  - Incorrect dose administered [Unknown]

NARRATIVE: CASE EVENT DATE: 20170303
